FAERS Safety Report 4973007-3 (Version None)
Quarter: 2006Q2

REPORT INFORMATION
  Report Type: 
  Country: None (occurrence: None)
  Receive Date: 20060414
  Receipt Date: 20060410
  Transmission Date: 20061013
  Serious: Yes (Life-Threatening)
  Sender: FDA-Public Use
  Company Number: DE-GLAXOSMITHKLINE-B0420082A

PATIENT
  Age: 65 Year
  Sex: Male

DRUGS (3)
  1. TOPOTECAN [Suspect]
     Indication: SMALL CELL LUNG CANCER STAGE UNSPECIFIED
     Dosage: 1MGM2 PER DAY
     Route: 042
     Dates: start: 20060323, end: 20060327
  2. CISPLATIN [Suspect]
     Indication: SMALL CELL LUNG CANCER STAGE UNSPECIFIED
     Dosage: .75MGM2 PER DAY
     Route: 042
     Dates: start: 20060327
  3. BELOC ZOK [Concomitant]
     Indication: SUPRAVENTRICULAR TACHYCARDIA
     Dosage: 47.5MG PER DAY
     Route: 048

REACTIONS (3)
  - EMBOLISM [None]
  - PAIN IN EXTREMITY [None]
  - PERIPHERAL COLDNESS [None]
